FAERS Safety Report 7109275-1 (Version None)
Quarter: 2010Q4

REPORT INFORMATION
  Report Type: 
  Country: None (occurrence: None)
  Receive Date: 20101117
  Receipt Date: 20101008
  Transmission Date: 20110411
  Serious: Yes (Life-Threatening, Hospitalization)
  Sender: FDA-Public Use
  Company Number: JP-AMGEN-US399197

PATIENT

DRUGS (15)
  1. ENBREL [Suspect]
     Dosage: UNK UNK, UNK
     Route: 058
  2. ENBREL [Suspect]
     Route: 058
     Dates: start: 20080110, end: 20080519
  3. ENBREL [Suspect]
     Route: 058
     Dates: start: 20090113, end: 20090617
  4. ENBREL [Suspect]
     Route: 058
     Dates: start: 20090622, end: 20100217
  5. METHOTREXATE [Suspect]
     Indication: PRODUCT USED FOR UNKNOWN INDICATION
     Dosage: UNK UNK, UNK
     Route: 048
     Dates: start: 20090101, end: 20100201
  6. METHOTREXATE [Suspect]
     Dosage: UNK UNK, UNK
     Route: 048
  7. TAKEPRON [Suspect]
     Indication: ABDOMINAL DISCOMFORT
     Route: 048
     Dates: start: 20100226, end: 20100305
  8. TAKEPRON [Suspect]
     Indication: PRODUCT USED FOR UNKNOWN INDICATION
  9. RHEUMATREX [Suspect]
     Indication: RHEUMATOID ARTHRITIS
     Dosage: 4-6 MG/WEEK
     Route: 048
     Dates: start: 20090113, end: 20100217
  10. GASTER [Suspect]
     Indication: ABDOMINAL DISCOMFORT
     Route: 048
     Dates: start: 20090726, end: 20091228
  11. GASTER [Suspect]
     Route: 048
     Dates: start: 20091228, end: 20100226
  12. GASTER [Concomitant]
     Dosage: UNK UNK, UNK
     Dates: start: 20100201, end: 20100201
  13. GASTER [Concomitant]
     Dosage: UNK UNK, UNK
     Route: 048
     Dates: start: 20100201, end: 20100310
  14. PREDNISOLONE [Concomitant]
     Indication: RHEUMATOID ARTHRITIS
     Dosage: UNSPECIFIED
     Route: 048
     Dates: start: 20050101, end: 20090726
  15. BERIZYM [Concomitant]
     Indication: DYSPEPSIA
     Route: 048
     Dates: start: 20080630, end: 20090726

REACTIONS (5)
  - DRUG EXPOSURE DURING PREGNANCY [None]
  - FUNGAL INFECTION [None]
  - PNEUMONIA VIRAL [None]
  - PREGNANCY [None]
  - WHITE BLOOD CELL COUNT DECREASED [None]
